FAERS Safety Report 20511208 (Version 1)
Quarter: 2022Q1

REPORT INFORMATION
  Report Type: Spontaneous
  Country: BY (occurrence: BY)
  Receive Date: 20220224
  Receipt Date: 20220224
  Transmission Date: 20220423
  Serious: Yes (Disabling, Other)
  Sender: FDA-Public Use
  Company Number: BY-BAYER-2022A025096

PATIENT
  Age: 67 Year

DRUGS (2)
  1. RIVAROXABAN [Suspect]
     Active Substance: RIVAROXABAN
     Indication: Product used for unknown indication
     Dosage: 10 MG, QD
     Route: 048
     Dates: start: 20201024
  2. ASPIRIN [Suspect]
     Active Substance: ASPIRIN
     Indication: Product used for unknown indication
     Dosage: 75 MG, QD
     Route: 065
     Dates: start: 20201124

REACTIONS (4)
  - Haematoma muscle [Recovered/Resolved]
  - Nerve compression [Recovered/Resolved]
  - Ischaemic neuropathy [Recovered/Resolved]
  - Monoparesis [Recovered/Resolved]
